FAERS Safety Report 17109619 (Version 5)
Quarter: 2020Q1

REPORT INFORMATION
  Report Type: Spontaneous
  Country: FR (occurrence: FR)
  Receive Date: 20191204
  Receipt Date: 20200205
  Transmission Date: 20200409
  Serious: Yes (Hospitalization, Other)
  Sender: FDA-Public Use
  Company Number: FR-AUROBINDO-AUR-APL-2019-094126

PATIENT
  Age: 58 Year
  Sex: Female

DRUGS (5)
  1. QUETIAPINE. [Suspect]
     Active Substance: QUETIAPINE
     Indication: BIPOLAR DISORDER
     Dosage: 150 MILLIGRAM, ONCE A DAY,PROLONGED RELEASE FORM; A LONG-TERM TREATMENT
     Route: 065
  2. RITONAVIR. [Interacting]
     Active Substance: RITONAVIR
     Indication: HIV INFECTION
  3. DARUNAVIR FILM COATED TABLETS [Interacting]
     Active Substance: DARUNAVIR
     Indication: HIV INFECTION
  4. DARUNAVIR FILM COATED TABLETS [Interacting]
     Active Substance: DARUNAVIR
     Indication: ANTIRETROVIRAL THERAPY
     Dosage: 800 MILLIGRAM
     Route: 048
  5. RITONAVIR. [Interacting]
     Active Substance: RITONAVIR
     Indication: ANTIRETROVIRAL THERAPY
     Dosage: 100 MILLIGRAM (BOOSTED BY 100MG)
     Route: 065

REACTIONS (7)
  - Psychomotor skills impaired [Unknown]
  - Electrocardiogram QT prolonged [Unknown]
  - Overdose [Unknown]
  - Syncope [Unknown]
  - Psychomotor retardation [Unknown]
  - Drug interaction [Unknown]
  - Contraindicated product administered [Unknown]
